FAERS Safety Report 8825251 (Version 3)
Quarter: 2015Q2

REPORT INFORMATION
  Report Type: Report from Study
  Country: US (occurrence: US)
  Receive Date: 20121004
  Receipt Date: 20150401
  Transmission Date: 20150821
  Serious: Yes (Death, Other)
  Sender: FDA-Public Use
  Company Number: US-ROCHE-1101949

PATIENT
  Sex: Male

DRUGS (3)
  1. RITUXAN [Suspect]
     Active Substance: RITUXIMAB
     Indication: DIFFUSE LARGE B-CELL LYMPHOMA
     Route: 042
     Dates: start: 20000518
  2. BENADRYL [Concomitant]
     Active Substance: DIPHENHYDRAMINE HYDROCHLORIDE
     Route: 042
  3. VIOXX [Concomitant]
     Active Substance: ROFECOXIB
     Route: 065

REACTIONS (9)
  - Tremor [Unknown]
  - Hypoaesthesia [Unknown]
  - Dyspnoea [Unknown]
  - Pyrexia [Unknown]
  - Asthenia [Unknown]
  - Non-Hodgkin^s lymphoma [Unknown]
  - Death [Fatal]
  - Chills [Unknown]
  - Proctalgia [Unknown]
